FAERS Safety Report 20690620 (Version 1)
Quarter: 2022Q2

REPORT INFORMATION
  Report Type: Report from Study
  Country: DK (occurrence: DK)
  Receive Date: 20220408
  Receipt Date: 20220408
  Transmission Date: 20220721
  Serious: Yes (Other)
  Sender: FDA-Public Use
  Company Number: DK-JNJFOC-20220365462

PATIENT
  Sex: Male

DRUGS (3)
  1. ZYTIGA [Suspect]
     Active Substance: ABIRATERONE ACETATE
     Indication: Prostate cancer metastatic
     Route: 048
     Dates: start: 201706, end: 201909
  2. PREDNISONE [Suspect]
     Active Substance: PREDNISONE
     Indication: Prostate cancer metastatic
     Route: 065
     Dates: start: 201706, end: 201909
  3. ENZALUTAMIDE [Suspect]
     Active Substance: ENZALUTAMIDE
     Indication: Prostate cancer metastatic
     Route: 065
     Dates: start: 201706, end: 201909

REACTIONS (7)
  - Type 2 diabetes mellitus [Unknown]
  - Central obesity [Unknown]
  - Glycosylated haemoglobin increased [Unknown]
  - Weight increased [Unknown]
  - Fatigue [Unknown]
  - Impaired quality of life [Unknown]
  - Blood cholesterol abnormal [Unknown]
